FAERS Safety Report 6918971-8 (Version None)
Quarter: 2010Q3

REPORT INFORMATION
  Report Type: 
  Country: None (occurrence: None)
  Receive Date: 20100811
  Receipt Date: 20090713
  Transmission Date: 20110219
  Serious: No
  Sender: FDA-Public Use
  Company Number: US-PFIZER INC-2009226492

PATIENT
  Sex: Female

DRUGS (2)
  1. GLUCOTROL [Suspect]
  2. METFORMIN HCL [Suspect]
     Dosage: UNK

REACTIONS (1)
  - BLOOD GLUCOSE FLUCTUATION [None]
